FAERS Safety Report 8925671 (Version 1)
Quarter: 2012Q4

REPORT INFORMATION
  Report Type: 
  Country: BE (occurrence: BE)
  Receive Date: 20121126
  Receipt Date: 20121126
  Transmission Date: 20130627
  Serious: Yes (Other)
  Sender: FDA-Public Use
  Company Number: BE-ELI_LILLY_AND_COMPANY-BE201211003900

PATIENT
  Age: 30 Year
  Sex: Male

DRUGS (1)
  1. ZYPADHERA [Suspect]
     Dosage: 405 mg, unknown
     Route: 030
     Dates: start: 20121108

REACTIONS (4)
  - Tachycardia [Unknown]
  - Accidental overdose [Unknown]
  - Agitation [Unknown]
  - Hypotension [Unknown]
